FAERS Safety Report 9006054 (Version 1)
Quarter: 2013Q1

REPORT INFORMATION
  Report Type: Spontaneous
  Country: US (occurrence: US)
  Receive Date: 20130109
  Receipt Date: 20130109
  Transmission Date: 20140127
  Serious: Yes (Death)
  Sender: FDA-Public Use
  Company Number: US-009507513-1301USA003123

PATIENT
  Age: 18 Year
  Sex: Female

DRUGS (3)
  1. SINGULAIR [Suspect]
     Indication: ASTHMA
     Route: 048
  2. SYMBICORT [Suspect]
     Dosage: 80/4.5, 2 INHALATIONS TWICE DAILY
     Route: 055
  3. CORTICOSTEROIDS (UNSPECIFIED) [Suspect]

REACTIONS (4)
  - Cardio-respiratory arrest [Fatal]
  - Asthma [Fatal]
  - Bronchospasm [Fatal]
  - Exposure during pregnancy [Unknown]
